FAERS Safety Report 8789503 (Version 1)
Quarter: 2012Q4

REPORT INFORMATION
  Report Type: Spontaneous
  Country: US (occurrence: None)
  Receive Date: 20120906
  Receipt Date: 20120906
  Transmission Date: 20130627
  Serious: Yes (Hospitalization)
  Sender: FDA-Public Use
  Company Number: AXC-2012-000398

PATIENT
  Age: 20 Year
  Sex: Female

DRUGS (3)
  1. MESALAMINE [Suspect]
     Indication: CROHN^S DISEASE
  2. 6-MP [Suspect]
     Indication: CROHN^S DISEASE
     Dates: end: 2009
  3. CERTOLIZUMAB PEGOL [Suspect]
     Indication: CROHN^S DISEASE
     Dates: start: 200812, end: 2009

REACTIONS (7)
  - Febrile neutropenia [None]
  - Faecal incontinence [None]
  - Nausea [None]
  - Vomiting [None]
  - Pancytopenia [None]
  - Bone marrow failure [None]
  - Aplastic anaemia [None]
